FAERS Safety Report 23228032 (Version 2)
Quarter: 2025Q2

REPORT INFORMATION
  Report Type: Spontaneous
  Country: ES (occurrence: ES)
  Receive Date: 20231125
  Receipt Date: 20250524
  Transmission Date: 20250717
  Serious: Yes (Death)
  Sender: CELLTRION
  Company Number: ES-CELLTRION INC.-2023ES022547

PATIENT

DRUGS (2)
  1. ADALIMUMAB [Suspect]
     Active Substance: ADALIMUMAB
     Indication: Intestinal pseudo-obstruction
     Route: 065
  2. ADALIMUMAB [Suspect]
     Active Substance: ADALIMUMAB
     Indication: Systemic scleroderma

REACTIONS (3)
  - Sudden death [Fatal]
  - Gastrointestinal disorder [Fatal]
  - Off label use [Unknown]
